FAERS Safety Report 5404168-X (Version None)
Quarter: 2007Q3

REPORT INFORMATION
  Report Type: 
  Country: None (occurrence: None)
  Receive Date: 20070802
  Receipt Date: 20070801
  Transmission Date: 20080115
  Serious: Yes (Hospitalization)
  Sender: FDA-Public Use
  Company Number: BE-BRISTOL-MYERS SQUIBB COMPANY-13865159

PATIENT
  Age: 61 Year
  Sex: Male

DRUGS (5)
  1. CARBOPLATIN [Suspect]
     Indication: SMALL CELL LUNG CANCER STAGE UNSPECIFIED
     Route: 042
     Dates: start: 20070712, end: 20070712
  2. ALIMTA [Suspect]
     Indication: SMALL CELL LUNG CANCER STAGE UNSPECIFIED
     Route: 042
     Dates: start: 20070712
  3. FOLAVIT [Concomitant]
     Route: 048
     Dates: start: 20070502
  4. VITAMIN B-12 [Concomitant]
     Route: 030
     Dates: start: 20070502
  5. MEDROL [Concomitant]
     Dates: start: 20070509, end: 20070713

REACTIONS (1)
  - COLITIS [None]
